FAERS Safety Report 9137573 (Version 1)
Quarter: 2013Q1

REPORT INFORMATION
  Report Type: Spontaneous
  Country: GB (occurrence: GB)
  Receive Date: 20130304
  Receipt Date: 20130304
  Transmission Date: 20140127
  Serious: Yes (Hospitalization)
  Sender: FDA-Public Use
  Company Number: GB-ASTRAZENECA-2013SE12508

PATIENT
  Age: 74 Year
  Sex: Female

DRUGS (2)
  1. PULMICORT TURBUHALER [Suspect]
     Indication: ASTHMA
     Dosage: 200 UNKNOWN UNITS, 2 PUFFS IN THE MORNING AND EVENING
     Route: 055
  2. VENTOLIN [Suspect]
     Indication: ASTHMA
     Route: 065

REACTIONS (1)
  - Emphysema [Unknown]
